FAERS Safety Report 16171159 (Version 1)
Quarter: 2019Q2

REPORT INFORMATION
  Report Type: Report from Study
  Country: NP (occurrence: NP)
  Receive Date: 20190408
  Receipt Date: 20190408
  Transmission Date: 20190711
  Serious: Yes (Death)
  Sender: FDA-Public Use
  Company Number: NP-PFIZER INC-2019148294

PATIENT
  Age: 27 Year
  Sex: Male

DRUGS (10)
  1. CYCLOPHOSPHAMIDE. [Suspect]
     Active Substance: CYCLOPHOSPHAMIDE
     Indication: EWING^S SARCOMA
     Dosage: 1200 MG/M2, CYCLIC (AS A 30-MINUTE INTRAVENOUS [IV] INFUSION)
     Route: 042
  2. VINCRISTINE [VINCRISTINE SULFATE] [Suspect]
     Active Substance: VINCRISTINE SULFATE
     Dosage: UNK (DOSE REDUCTIONS IN THE 10% TO 20% RANGE)
  3. DOXORUBICIN HCL [Suspect]
     Active Substance: DOXORUBICIN HYDROCHLORIDE
     Indication: EWING^S SARCOMA
     Dosage: 40 MG/M2, DAILY (4-HOUR IV INFUSION ON DAYS 1 AND 2)
     Route: 042
  4. DOXORUBICIN HCL [Suspect]
     Active Substance: DOXORUBICIN HYDROCHLORIDE
     Dosage: UNK (DOSE REDUCTIONS IN THE 10% TO 20% RANGE)
  5. CYCLOPHOSPHAMIDE. [Suspect]
     Active Substance: CYCLOPHOSPHAMIDE
     Dosage: UNK (DOSE REDUCTIONS IN THE 10% TO 20% RANGE)
  6. ETOPOSIDE [ETOPOSIDE PHOSPHATE] [Suspect]
     Active Substance: ETOPOSIDE PHOSPHATE
     Indication: EWING^S SARCOMA
     Dosage: 150 MG/M2, DAILY (AS 2-HOUR IV INFUSION)
     Route: 042
  7. ETOPOSIDE [ETOPOSIDE PHOSPHATE] [Suspect]
     Active Substance: ETOPOSIDE PHOSPHATE
     Dosage: UNK (DOSE REDUCTIONS IN THE 10% TO 20% RANGE)
  8. VINCRISTINE [VINCRISTINE SULFATE] [Suspect]
     Active Substance: VINCRISTINE SULFATE
     Indication: EWING^S SARCOMA
     Dosage: 1.5 MG/M2, CYCLIC (IV PUSH, MAXIMUM, 2 MG)
     Route: 042
  9. IFOSFAMIDE DCI [Suspect]
     Active Substance: IFOSFAMIDE
     Dosage: UNK (DOSE REDUCTIONS IN THE 10% TO 20% RANGE)
  10. IFOSFAMIDE DCI [Suspect]
     Active Substance: IFOSFAMIDE
     Indication: EWING^S SARCOMA
     Dosage: 3000 MG/M2, CYCLIC (OVER 21 TO 24 HOURS AS 3-DAY CONTINUOUS IV INFUSION)
     Route: 042

REACTIONS (2)
  - Febrile neutropenia [Fatal]
  - Haematotoxicity [Fatal]
